FAERS Safety Report 5566299-3 (Version None)
Quarter: 2007Q4

REPORT INFORMATION
  Report Type: 
  Country: None (occurrence: None)
  Receive Date: 20071219
  Receipt Date: 20071207
  Transmission Date: 20080405
  Serious: Yes (Hospitalization, Other)
  Sender: FDA-Public Use
  Company Number: GB-WYE-H01606807

PATIENT
  Sex: Male

DRUGS (2)
  1. CORDARONE [Suspect]
     Indication: ARRHYTHMIA
     Route: 065
  2. SOTALOL HYDROCHLORIDE [Concomitant]
     Indication: ARRHYTHMIA

REACTIONS (4)
  - HALLUCINATION [None]
  - HEART RATE DECREASED [None]
  - NIGHTMARE [None]
  - PALPITATIONS [None]
